FAERS Safety Report 16715596 (Version 4)
Quarter: 2020Q1

REPORT INFORMATION
  Report Type: Spontaneous
  Country: US (occurrence: US)
  Receive Date: 20190819
  Receipt Date: 20200311
  Transmission Date: 20200409
  Serious: No
  Sender: FDA-Public Use
  Company Number: US-PFIZER INC-2019353049

PATIENT
  Age: 67 Year
  Sex: Female
  Weight: 73.3 kg

DRUGS (1)
  1. IBRANCE [Suspect]
     Active Substance: PALBOCICLIB
     Indication: BREAST CANCER STAGE IV
     Dosage: 100 MG, DAILY (21 DAYS ON, 7 DAYS OFF)
     Route: 048

REACTIONS (6)
  - Malaise [Unknown]
  - Pain [Not Recovered/Not Resolved]
  - Weight decreased [Unknown]
  - Nausea [Unknown]
  - Discomfort [Not Recovered/Not Resolved]
  - Influenza [Unknown]
